FAERS Safety Report 8994212 (Version 2)
Quarter: 2013Q1

REPORT INFORMATION
  Report Type: Spontaneous
  Country: US (occurrence: US)
  Receive Date: 20130102
  Receipt Date: 20130204
  Transmission Date: 20140127
  Serious: No
  Sender: FDA-Public Use
  Company Number: US-AMGEN-USASP2012081311

PATIENT
  Age: 50 Year
  Sex: Female
  Weight: 108.39 kg

DRUGS (3)
  1. ENBREL [Suspect]
     Indication: RHEUMATOID ARTHRITIS
     Dosage: 50 MG, QWK
     Route: 058
     Dates: start: 20111202, end: 20121121
  2. METHOTREXATE [Concomitant]
     Indication: RHEUMATOID ARTHRITIS
     Dosage: 0.1 ML, QWK
     Route: 058
     Dates: start: 20110325
  3. PLAQUENIL                          /00072602/ [Concomitant]
     Indication: RHEUMATOID ARTHRITIS
     Dosage: 200 MG, QD
     Route: 048
     Dates: start: 20101202

REACTIONS (1)
  - Hepatic enzyme increased [Recovered/Resolved]
